FAERS Safety Report 21008005 (Version 1)
Quarter: 2022Q2

REPORT INFORMATION
  Report Type: Spontaneous
  Country: FR (occurrence: FR)
  Receive Date: 20220627
  Receipt Date: 20220627
  Transmission Date: 20220721
  Serious: Yes (Other)
  Sender: FDA-Public Use
  Company Number: FR-MLMSERVICE-20220608-3599348-1

PATIENT

DRUGS (2)
  1. LEVETIRACETAM [Suspect]
     Active Substance: LEVETIRACETAM
     Indication: Epilepsy
     Dosage: 1000 MILLIGRAM, EVERY 12 HRS
     Route: 065
  2. PREGABALIN [Suspect]
     Active Substance: PREGABALIN
     Indication: Epilepsy
     Dosage: 100 MILLIGRAM, EVERY 12 HRS
     Route: 065

REACTIONS (5)
  - Nicotinic acid deficiency [Recovered/Resolved]
  - Condition aggravated [Recovered/Resolved]
  - Decreased appetite [Unknown]
  - Anaemia macrocytic [Unknown]
  - Hypoalbuminaemia [Unknown]
